FAERS Safety Report 12813166 (Version 2)
Quarter: 2016Q4

REPORT INFORMATION
  Report Type: Report from Study
  Country: DE (occurrence: DE)
  Receive Date: 20161005
  Receipt Date: 20161019
  Transmission Date: 20170207
  Serious: Yes (Hospitalization)
  Sender: FDA-Public Use
  Company Number: DE-JNJFOC-20161000180

PATIENT
  Age: 15 Year
  Sex: Male
  Weight: 38.4 kg

DRUGS (5)
  1. URBASON [Concomitant]
     Active Substance: METHYLPREDNISOLONE
     Route: 065
  2. ENTYVIO [Concomitant]
     Active Substance: VEDOLIZUMAB
     Route: 065
     Dates: start: 20160801
  3. METHOTREXATE. [Concomitant]
     Active Substance: METHOTREXATE
     Route: 065
     Dates: end: 20161004
  4. 5-AMINOSALICYLIC ACID [Concomitant]
     Active Substance: MESALAMINE
     Route: 048
  5. REMICADE [Suspect]
     Active Substance: INFLIXIMAB
     Indication: CROHN^S DISEASE
     Route: 042
     Dates: start: 20151124

REACTIONS (1)
  - Clostridium difficile colitis [Recovered/Resolved]

NARRATIVE: CASE EVENT DATE: 20160922
